FAERS Safety Report 17631665 (Version 1)
Quarter: 2020Q2

REPORT INFORMATION
  Report Type: Spontaneous
  Country: US (occurrence: US)
  Receive Date: 20200403
  Receipt Date: 20200403
  Transmission Date: 20200713
  Serious: No
  Sender: FDA-Public Use
  Company Number: None

PATIENT
  Age: 64 Year
  Sex: Male

DRUGS (2)
  1. CAPECITABINE TAB 150MG [Suspect]
     Active Substance: CAPECITABINE
     Indication: RECTAL CANCER
     Route: 048
     Dates: start: 202001, end: 20200401
  2. CAPECITABINE 500MG [Concomitant]
     Active Substance: CAPECITABINE

REACTIONS (2)
  - Diarrhoea [None]
  - Therapy change [None]

NARRATIVE: CASE EVENT DATE: 20200403
